FAERS Safety Report 4326116-6 (Version None)
Quarter: 2004Q1

REPORT INFORMATION
  Report Type: 
  Country: None (occurrence: None)
  Receive Date: 20040323
  Receipt Date: 20040217
  Transmission Date: 20041129
  Serious: No
  Sender: FDA-Public Use
  Company Number: US_0402100897

PATIENT
  Age: 60 Year
  Sex: Male
  Weight: 109 kg

DRUGS (2)
  1. CIALIS [Suspect]
     Dosage: 20 MG/DAY
     Dates: start: 20040207
  2. LEVAQUIN (LAVOFLOXACIN) [Concomitant]

REACTIONS (1)
  - SINUSITIS [None]
